FAERS Safety Report 8045812-0 (Version None)
Quarter: 2012Q1

REPORT INFORMATION
  Report Type: 
  Country: None (occurrence: None)
  Receive Date: 20120113
  Receipt Date: 20120110
  Transmission Date: 20120608
  Serious: Yes (Hospitalization)
  Sender: FDA-Public Use
  Company Number: JP-PFIZER INC-2011283033

PATIENT
  Age: 79 Year
  Sex: Female

DRUGS (5)
  1. AMITRIPTYLINE HCL [Suspect]
     Dosage: UNK
     Dates: end: 20111025
  2. LIPITOR [Suspect]
     Dosage: 10 MG, 1X/DAY
     Route: 048
     Dates: start: 20100926
  3. NIKORANMART [Concomitant]
     Dosage: UNK
     Dates: start: 20100926
  4. LISINOPRIL [Concomitant]
     Dosage: UNK
     Dates: start: 20101012
  5. ASPIRIN [Suspect]
     Dosage: UNK
     Dates: start: 20101012

REACTIONS (2)
  - PANCREATIC NEOPLASM [None]
  - HEPATIC FUNCTION ABNORMAL [None]
